FAERS Safety Report 11086986 (Version 1)
Quarter: 2015Q2

REPORT INFORMATION
  Report Type: Spontaneous
  Country: US (occurrence: US)
  Receive Date: 20150504
  Receipt Date: 20150504
  Transmission Date: 20150821
  Serious: Yes (Other)
  Sender: FDA-Public Use
  Company Number: US-AUROBINDO-AUR-APL-2015-03875

PATIENT
  Age: 18 Year
  Sex: Female

DRUGS (1)
  1. TOPIRAMATE 50MG FILM-COATED TABLETS [Suspect]
     Active Substance: TOPIRAMATE
     Indication: MIGRAINE
     Dosage: 50 MG, UNK
     Route: 065

REACTIONS (8)
  - Eating disorder [Unknown]
  - Weight decreased [Unknown]
  - Contusion [Unknown]
  - Temperature intolerance [Unknown]
  - Oligomenorrhoea [Unknown]
  - Pain management [Unknown]
  - Self-induced vomiting [Unknown]
  - Sleep disorder [Unknown]
